FAERS Safety Report 25131697 (Version 1)
Quarter: 2025Q1

REPORT INFORMATION
  Report Type: Spontaneous
  Country: US (occurrence: US)
  Receive Date: 20250327
  Receipt Date: 20250327
  Transmission Date: 20250409
  Serious: Yes (Other)
  Sender: ALEXION PHARMACEUTICALS
  Company Number: US-AstraZeneca-CH-00832245A

PATIENT

DRUGS (1)
  1. STRENSIQ [Suspect]
     Active Substance: ASFOTASE ALFA
     Indication: Hypophosphatasia

REACTIONS (4)
  - Rheumatoid arthritis [Recovered/Resolved]
  - Illness [Recovered/Resolved]
  - Blood glucose abnormal [Recovered/Resolved]
  - COVID-19 [Recovered/Resolved]
